FAERS Safety Report 5600394-5 (Version None)
Quarter: 2008Q1

REPORT INFORMATION
  Report Type: 
  Country: None (occurrence: None)
  Receive Date: 20080118
  Receipt Date: 20080105
  Transmission Date: 20080703
  Serious: Yes (Other)
  Sender: FDA-Public Use
  Company Number: 022310

PATIENT
  Sex: Female

DRUGS (1)
  1. PLAN B [Suspect]
     Indication: CONTRACEPTION
     Dosage: TABLET, ORAL
     Route: 048

REACTIONS (4)
  - DIZZINESS [None]
  - SYNCOPE [None]
  - UNRESPONSIVE TO STIMULI [None]
  - VOMITING [None]
